FAERS Safety Report 8524945-6 (Version None)
Quarter: 2012Q3

REPORT INFORMATION
  Report Type: 
  Country: None (occurrence: None)
  Receive Date: 20120720
  Receipt Date: 20120711
  Transmission Date: 20120928
  Serious: No
  Sender: FDA-Public Use
  Company Number: US-009507513-1207USA002850

PATIENT

DRUGS (3)
  1. REBETOL [Suspect]
  2. PEGASYS [Suspect]
  3. VICTRELIS [Suspect]
     Dosage: 4 DF, TID
     Dates: start: 20120501

REACTIONS (4)
  - ABDOMINAL DISTENSION [None]
  - DYSPEPSIA [None]
  - INSOMNIA [None]
  - FLATULENCE [None]
